FAERS Safety Report 10471536 (Version 1)
Quarter: 2014Q3

REPORT INFORMATION
  Report Type: Spontaneous
  Country: US (occurrence: US)
  Receive Date: 20140923
  Receipt Date: 20140923
  Transmission Date: 20150326
  Serious: No
  Sender: FDA-Public Use
  Company Number: US-009507513-1409USA007437

PATIENT
  Age: 24 Year
  Sex: Female
  Weight: 50.79 kg

DRUGS (1)
  1. NEXPLANON [Suspect]
     Active Substance: ETONOGESTREL
     Indication: CONTRACEPTION
     Dosage: 1 ROD/3 YEARS, LEFT ARM
     Route: 059
     Dates: start: 20140313

REACTIONS (2)
  - Urticaria [Unknown]
  - Device dislocation [Unknown]

NARRATIVE: CASE EVENT DATE: 20140910
